FAERS Safety Report 5748953-3 (Version None)
Quarter: 2008Q2

REPORT INFORMATION
  Report Type: 
  Country: None (occurrence: None)
  Receive Date: 20080526
  Receipt Date: 20080519
  Transmission Date: 20081010
  Serious: Yes (Hospitalization, Other)
  Sender: FDA-Public Use
  Company Number: US-BAYER-200818648NA

PATIENT
  Age: 79 Year
  Sex: Female
  Weight: 71 kg

DRUGS (8)
  1. AVELOX [Suspect]
     Indication: SINUSITIS
     Dosage: TOTAL DAILY DOSE: 400 MG  UNIT DOSE: 400 MG
     Route: 048
  2. VENTOLIN [Concomitant]
  3. LOTREL [Concomitant]
  4. METOPROLOL TARTRATE [Concomitant]
  5. SINGULAIR [Concomitant]
  6. VYTORIN [Concomitant]
  7. XANAX [Concomitant]
  8. CYMBALTA [Concomitant]

REACTIONS (5)
  - ANAPHYLACTIC REACTION [None]
  - BLOOD PRESSURE DECREASED [None]
  - DYSPNOEA [None]
  - PRURITUS [None]
  - VOMITING [None]
